FAERS Safety Report 6817698-0 (Version None)
Quarter: 2010Q3

REPORT INFORMATION
  Report Type: 
  Country: None (occurrence: None)
  Receive Date: 20100706
  Receipt Date: 20100624
  Transmission Date: 20110219
  Serious: Yes (Death)
  Sender: FDA-Public Use
  Company Number: US-PFIZER INC-2010059923

PATIENT
  Sex: Female
  Weight: 62.812 kg

DRUGS (3)
  1. SUTENT [Suspect]
     Indication: RENAL CELL CARCINOMA
     Dosage: 50 MG, 1X/DAY
     Dates: start: 20100204
  2. COUMADIN [Concomitant]
  3. NAPROSYN [Concomitant]
     Dosage: FREQUENCY: AS NEEDED,

REACTIONS (5)
  - ACUTE RESPIRATORY FAILURE [None]
  - DISEASE PROGRESSION [None]
  - METASTATIC RENAL CELL CARCINOMA [None]
  - PULMONARY OEDEMA [None]
  - SHOCK [None]
